FAERS Safety Report 24913828 (Version 1)
Quarter: 2025Q1

REPORT INFORMATION
  Report Type: Spontaneous
  Country: US (occurrence: US)
  Receive Date: 20250202
  Receipt Date: 20250202
  Transmission Date: 20250408
  Serious: No
  Sender: MERCK
  Company Number: US-009507513-2501USA010790

PATIENT
  Age: 11 Day
  Sex: Female

DRUGS (5)
  1. INVANZ [Suspect]
     Active Substance: ERTAPENEM SODIUM
     Indication: Staphylococcal sepsis
     Dosage: 15 MG/KG/DOSE EVERY 12 HOURS
  2. VANCOMYCIN [Concomitant]
     Active Substance: VANCOMYCIN
     Indication: Staphylococcal sepsis
     Dosage: 15 MG/KG/DOSE EVERY 12 HOURS
  3. CEFEPIME [Concomitant]
     Active Substance: CEFEPIME HYDROCHLORIDE
     Indication: Staphylococcal sepsis
     Dosage: 50 MG/KG/DOSE EVERY 12 HOURS
  4. CEFAZOLIN [Concomitant]
     Active Substance: CEFAZOLIN
     Indication: Staphylococcal sepsis
     Dosage: 33 MG/KG/DOSE EVERY 8 HOURS
  5. RIFAMPIN [Concomitant]
     Active Substance: RIFAMPIN
     Indication: Staphylococcal sepsis
     Dosage: 10 MG/DOSE EVERY 12 HOURS

REACTIONS (1)
  - Off label use [Unknown]
